FAERS Safety Report 5822919-7 (Version None)
Quarter: 2008Q3

REPORT INFORMATION
  Report Type: 
  Country: None (occurrence: None)
  Receive Date: 20080724
  Receipt Date: 20080724
  Transmission Date: 20090109
  Serious: Yes (Other)
  Sender: FDA-Public Use
  Company Number: None

PATIENT
  Sex: Female
  Weight: 90.7194 kg

DRUGS (1)
  1. HALOPERIDOL DECANOATE [Suspect]
     Indication: SCHIZOPHRENIA
     Dosage: 1 1/2 CC'S BIMONTHLY SHOT 1996-1999 AND 1 TIME EARLIER
     Dates: start: 19960101, end: 19990101

REACTIONS (1)
  - WEIGHT INCREASED [None]
